FAERS Safety Report 5329695-5 (Version None)
Quarter: 2007Q2

REPORT INFORMATION
  Report Type: 
  Country: None (occurrence: None)
  Receive Date: 20070515
  Receipt Date: 20070504
  Transmission Date: 20071010
  Serious: Yes (Death)
  Sender: FDA-Public Use
  Company Number: GXKR2006GB04360

PATIENT
  Age: 63 Year
  Sex: Female

DRUGS (12)
  1. CITALOPRAM HYDROBROMIDE [Suspect]
     Dosage: ORAL
     Route: 048
  2. OMEPRAZOLE [Suspect]
     Dosage: ORAL
     Route: 048
  3. PERINDOPRIL ERBUMINE [Suspect]
     Indication: HYPERTENSION
     Dosage: ORAL
     Route: 048
  4. ADIZEM -SLOW RELEASE (DILTIAZEM HYDROCHLORIDE) [Concomitant]
  5. BECONASE [Concomitant]
  6. FUROSEMIDE [Concomitant]
  7. SALBUTAMOL (SALBUTAMOL) [Concomitant]
  8. SENNA (SENNA, SENNA ALEXANDRINA) [Concomitant]
  9. VITAMIEN B COMPLEX (CALCIUM PANTOTHENATE, NICOTINAMIDE, PYRIDOXINE HYD [Concomitant]
  10. OLANZAPINE [Concomitant]
  11. ACETAMINOPHEN [Concomitant]
  12. THIAMINE (THIAMINE) [Concomitant]

REACTIONS (5)
  - ANGIOEDEMA [None]
  - DYSPNOEA [None]
  - HYPERSENSITIVITY [None]
  - LARYNGEAL OEDEMA [None]
  - SWELLING FACE [None]
